FAERS Safety Report 7496414-6 (Version None)
Quarter: 2011Q2

REPORT INFORMATION
  Report Type: 
  Country: None (occurrence: None)
  Receive Date: 20110523
  Receipt Date: 20110518
  Transmission Date: 20111010
  Serious: Yes (Hospitalization, Other)
  Sender: FDA-Public Use
  Company Number: GXKR2011DE01744

PATIENT
  Sex: Female

DRUGS (5)
  1. PREDNISOLONE [Suspect]
     Dosage: REDUCED TO 5 MG DAILY FROM GW 8 -11
     Route: 048
  2. FOLIC ACID [Concomitant]
     Indication: PROPHYLAXIS OF NEURAL TUBE DEFECT
     Dosage: UNK UKN, UNK
     Route: 048
  3. PREDNISOLONE [Suspect]
     Indication: CROHN'S DISEASE
     Dosage: 70 M, QD, GW 0-8
     Route: 048
  4. AZATHIOPRINE [Suspect]
     Indication: CROHN'S DISEASE
     Dosage: 150 MG, QD
     Route: 048
  5. PENTASA [Concomitant]
     Indication: CROHN'S DISEASE
     Dosage: 100 MG, QD
     Route: 048

REACTIONS (2)
  - ABORTION SPONTANEOUS [None]
  - DRUG EXPOSURE DURING PREGNANCY [None]
